FAERS Safety Report 9008575 (Version 5)
Quarter: 2013Q4

REPORT INFORMATION
  Report Type: Report from Study
  Country: JP (occurrence: JP)
  Receive Date: 20130111
  Receipt Date: 20131008
  Transmission Date: 20140711
  Serious: Yes (Hospitalization, Other)
  Sender: FDA-Public Use
  Company Number: JP-ASTELLAS-2013US000381

PATIENT
  Age: 49 Year
  Sex: Male
  Weight: 65 kg

DRUGS (19)
  1. ERLOTINIB TABLET [Suspect]
     Indication: ADENOCARCINOMA PANCREAS
     Dosage: 100 MG, UID/QD
     Route: 048
     Dates: start: 20120829, end: 20120902
  2. ERLOTINIB TABLET [Suspect]
     Dosage: 50 MG, UID/QD
     Route: 048
     Dates: start: 20120925, end: 20121002
  3. ERLOTINIB TABLET [Suspect]
     Dosage: 50 MG, UID/QD
     Route: 048
     Dates: start: 20121023, end: 20121115
  4. GEMCITABINE [Suspect]
     Indication: ADENOCARCINOMA PANCREAS
     Dosage: 1000 MG/M2, UID/QD
     Route: 041
     Dates: start: 20120829, end: 20120829
  5. GEMCITABINE [Suspect]
     Dosage: 1000 MG/M2, UID/QD
     Route: 041
     Dates: start: 20120904, end: 20120904
  6. GEMCITABINE [Suspect]
     Dosage: 1000 MG/M2, UID/QD
     Route: 041
     Dates: start: 20120911, end: 20120911
  7. GEMCITABINE [Suspect]
     Dosage: 1000 MG/M2, UID/QD
     Route: 041
     Dates: start: 20120925, end: 20120925
  8. GEMCITABINE [Suspect]
     Dosage: 1000 MG/M2, UID/QD
     Route: 041
     Dates: start: 20121002, end: 20121002
  9. GEMCITABINE [Suspect]
     Dosage: 1000 MG/M2, UID/QD
     Route: 041
     Dates: start: 20121009, end: 20121009
  10. GEMCITABINE [Suspect]
     Dosage: 1000 MG/M2, UID/QD
     Route: 041
     Dates: start: 20121023, end: 20121023
  11. GEMCITABINE [Suspect]
     Dosage: 1000 MG/M2, UID/QD
     Route: 041
     Dates: start: 20121030, end: 20121030
  12. GEMCITABINE [Suspect]
     Dosage: 1000 MG/M2, UID/QD
     Route: 041
     Dates: start: 20121106, end: 20121106
  13. LOXONIN [Concomitant]
     Indication: ADENOCARCINOMA PANCREAS
     Dosage: 60 MG, UID/QD
     Route: 048
     Dates: start: 20120903
  14. MUCOSTA [Concomitant]
     Indication: PROPHYLAXIS
     Dosage: 100 MG, UID/QD
     Route: 048
     Dates: end: 20120903
  15. MAGLAX [Concomitant]
     Indication: PRODUCT USED FOR UNKNOWN INDICATION
     Dosage: 990 MG, UID/QD
     Route: 048
  16. NEXIUM                             /01479302/ [Concomitant]
     Indication: PRODUCT USED FOR UNKNOWN INDICATION
     Dosage: 20 MG, UID/QD
     Route: 048
  17. LAXOBERON [Concomitant]
     Indication: CONSTIPATION
     Dosage: 15 GTT, DAILY
     Route: 048
  18. GRANISETRON [Concomitant]
     Indication: PROPHYLAXIS
     Dosage: 3 MG, UID/QD
     Route: 042
     Dates: start: 20120829
  19. DEXART [Concomitant]
     Indication: PROPHYLAXIS
     Dosage: 6.6 MG, UID/QD
     Route: 042
     Dates: start: 20120829

REACTIONS (10)
  - White blood cell count decreased [Recovered/Resolved]
  - Pneumocystis jirovecii pneumonia [Unknown]
  - Interstitial lung disease [Recovered/Resolved]
  - Erythema multiforme [Recovered/Resolved]
  - Chalazion [Recovered/Resolved]
  - Fungal infection [Unknown]
  - Dermatitis acneiform [Recovered/Resolved]
  - Platelet count decreased [Recovered/Resolved]
  - Platelet count decreased [Recovered/Resolved]
  - Platelet count decreased [Recovered/Resolved]
